FAERS Safety Report 4376277-8 (Version None)
Quarter: 2004Q2

REPORT INFORMATION
  Report Type: 
  Country: None (occurrence: None)
  Receive Date: 20040608
  Receipt Date: 20030220
  Transmission Date: 20050107
  Serious: Yes (Life-Threatening, Other)
  Sender: FDA-Public Use
  Company Number: 200310624BCC

PATIENT
  Age: 63 Year
  Sex: Female
  Weight: 72.5755 kg

DRUGS (2)
  1. ALEVE [Suspect]
     Indication: BACK PAIN
     Dosage: 220 MG, ONCE, ORAL
     Route: 048
     Dates: start: 20030213
  2. ESTROGEN PATCH [Concomitant]

REACTIONS (8)
  - ANAPHYLACTIC REACTION [None]
  - APHASIA [None]
  - BLINDNESS [None]
  - DYSPNOEA [None]
  - FATIGUE [None]
  - PRURITUS GENERALISED [None]
  - RASH [None]
  - SWOLLEN TONGUE [None]
